FAERS Safety Report 21526062 (Version 3)
Quarter: 2024Q3

REPORT INFORMATION
  Report Type: Report from Study
  Country: GB (occurrence: GB)
  Receive Date: 20221031
  Receipt Date: 20240902
  Transmission Date: 20241017
  Serious: Yes (Hospitalization, Other)
  Sender: NOVARTIS
  Company Number: GB-NOVARTISPH-NVSC2022GB241433

PATIENT
  Age: 81 Year
  Sex: Male

DRUGS (3)
  1. COSENTYX [Suspect]
     Active Substance: SECUKINUMAB
     Indication: Ankylosing spondylitis
     Dosage: 150 MG, QMO
     Route: 058
     Dates: end: 20220825
  2. COSENTYX [Suspect]
     Active Substance: SECUKINUMAB
     Dosage: UNK (RESTARTED)
     Route: 050
     Dates: start: 20220908
  3. COSENTYX [Suspect]
     Active Substance: SECUKINUMAB
     Dosage: 150 MG, QMO
     Route: 058

REACTIONS (6)
  - Pneumonia [Unknown]
  - COVID-19 [Unknown]
  - Dementia [Recovered/Resolved]
  - Memory impairment [Recovered/Resolved]
  - Lower respiratory tract infection [Recovered/Resolved]
  - Dementia [Unknown]

NARRATIVE: CASE EVENT DATE: 20220815
